FAERS Safety Report 14573517 (Version 2)
Quarter: 2019Q3

REPORT INFORMATION
  Report Type: Spontaneous
  Country: FR (occurrence: FR)
  Receive Date: 20180226
  Receipt Date: 20190809
  Transmission Date: 20191004
  Serious: Yes (Life-Threatening)
  Sender: FDA-Public Use
  Company Number: FR-SA-2018SA040496

PATIENT
  Age: 79 Year
  Sex: Male

DRUGS (18)
  1. ONDANSETRON HYDROCHLORIDE. [Suspect]
     Active Substance: ONDANSETRON HYDROCHLORIDE
     Indication: PROPHYLAXIS OF NAUSEA AND VOMITING
     Dosage: 8 MG, TOTAL
     Route: 048
     Dates: start: 20141201, end: 20141201
  2. INEGY [Concomitant]
     Active Substance: EZETIMIBE\SIMVASTATIN
  3. ACTONEL [Concomitant]
     Active Substance: RISEDRONATE SODIUM
  4. IMOVANE [Concomitant]
     Active Substance: ZOPICLONE
     Dosage: UNK
  5. PLAVIX [Suspect]
     Active Substance: CLOPIDOGREL BISULFATE
     Indication: MYOCARDIAL ISCHAEMIA
     Dosage: UNK UNK,UNK
     Route: 048
  6. CONTRAMAL [Concomitant]
     Active Substance: TRAMADOL HYDROCHLORIDE
     Dosage: UNK
  7. OXEOL [Concomitant]
     Active Substance: BAMBUTEROL HYDROCHLORIDE
  8. IPRATROPIUM BROMIDE\FENOTEROL HYDROBROMIDE [Concomitant]
     Active Substance: FENOTEROL HYDROBROMIDE\IPRATROPIUM BROMIDE
  9. APROVEL [Concomitant]
     Active Substance: IRBESARTAN
  10. CARBOPLATIN. [Suspect]
     Active Substance: CARBOPLATIN
     Indication: BRONCHIAL CARCINOMA
     Dosage: UNK UNK,UNK
     Route: 042
     Dates: start: 20141201, end: 20141201
  11. VENTOLIN [Concomitant]
     Active Substance: ALBUTEROL SULFATE
  12. LASILIX [FUROSEMIDE] [Concomitant]
     Active Substance: FUROSEMIDE
  13. ETOPOSIDE. [Suspect]
     Active Substance: ETOPOSIDE
     Indication: BRONCHIAL CARCINOMA
     Dosage: UNK UNK,UNK
     Route: 042
     Dates: start: 20141201, end: 20141201
  14. METHYLPREDNISOLONE SODIUM SUCCINATE. [Suspect]
     Active Substance: METHYLPREDNISOLONE SODIUM SUCCINATE
     Indication: PROPHYLAXIS OF NAUSEA AND VOMITING
     Dosage: 120 MG,TOTAL
     Route: 048
     Dates: start: 20141201, end: 20141201
  15. ZYLORIC [Concomitant]
     Active Substance: ALLOPURINOL
  16. LYRICA [Concomitant]
     Active Substance: PREGABALIN
     Dosage: UNK
  17. SYMBICORT [Concomitant]
     Active Substance: BUDESONIDE\FORMOTEROL FUMARATE DIHYDRATE
  18. DISCOTRINE [Concomitant]
     Active Substance: NITROGLYCERIN

REACTIONS (3)
  - Staphylococcal infection [Recovered/Resolved]
  - Febrile bone marrow aplasia [Recovered/Resolved]
  - Melaena [Recovered/Resolved]

NARRATIVE: CASE EVENT DATE: 20141214
